FAERS Safety Report 20615632 (Version 2)
Quarter: 2022Q1

REPORT INFORMATION
  Report Type: Spontaneous
  Country: US (occurrence: US)
  Receive Date: 20220321
  Receipt Date: 20220326
  Transmission Date: 20220423
  Serious: No
  Sender: FDA-Public Use
  Company Number: US-JNJFOC-20220331232

PATIENT

DRUGS (3)
  1. ZYRTEC [Suspect]
     Active Substance: CETIRIZINE HYDROCHLORIDE
     Indication: Vaccination complication
     Route: 065
  2. COVID-19 VACCINE [Concomitant]
     Indication: Immunisation
     Route: 065
  3. UNSPECIFIED INGREDIENT [Concomitant]
     Active Substance: UNSPECIFIED INGREDIENT
     Indication: Rash
     Dosage: TWO ROUNDS
     Route: 065

REACTIONS (1)
  - Product use in unapproved indication [Unknown]
